FAERS Safety Report 16177258 (Version 3)
Quarter: 2021Q1

REPORT INFORMATION
  Report Type: Report from Study
  Country: US (occurrence: US)
  Receive Date: 20190410
  Receipt Date: 20210302
  Transmission Date: 20210419
  Serious: No
  Sender: FDA-Public Use
  Company Number: US-SHIRE-US201911837

PATIENT
  Sex: Male

DRUGS (11)
  1. DORZOLAMIDE + TIMOLOL GENOPTIM [Concomitant]
     Indication: GLAUCOMA
  2. CARVEDILOL. [Concomitant]
     Active Substance: CARVEDILOL
     Indication: CARDIAC DISORDER
  3. IDURSULFASE [Suspect]
     Active Substance: IDURSULFASE
     Indication: MUCOPOLYSACCHARIDOSIS II
     Dosage: 50 MILLILITER, 1/WEEK
     Route: 042
     Dates: start: 20161121, end: 201901
  4. LOSARTIN [Concomitant]
     Active Substance: LOSARTAN
     Indication: CARDIAC DISORDER
  5. ACETAMINOPHEN. [Concomitant]
     Active Substance: ACETAMINOPHEN
     Indication: PAIN
  6. ALBUTEROL HFA [Concomitant]
     Active Substance: ALBUTEROL SULFATE
     Indication: COUGH
  7. FLOVENT HFA [Concomitant]
     Active Substance: FLUTICASONE PROPIONATE
     Indication: COUGH
  8. HEPARIN [Concomitant]
     Active Substance: HEPARIN SODIUM
     Indication: FLUSHING
  9. LIDOCAINE PRILOCAINE BIOGARAN [Concomitant]
     Indication: POOR VENOUS ACCESS
  10. IDURSULFASE [Suspect]
     Active Substance: IDURSULFASE
     Dosage: UNK, 1/WEEK
     Route: 042
     Dates: start: 20061006
  11. SALINE KARE [Concomitant]
     Indication: PAIN

REACTIONS (5)
  - Inappropriate schedule of product administration [Not Recovered/Not Resolved]
  - Pyrexia [Unknown]
  - Drug ineffective [Unknown]
  - Headache [Recovered/Resolved]
  - Infusion related reaction [Unknown]
